FAERS Safety Report 8616405-9 (Version None)
Quarter: 2012Q3

REPORT INFORMATION
  Report Type: 
  Country: None (occurrence: None)
  Receive Date: 20120823
  Receipt Date: 20120816
  Transmission Date: 20120928
  Serious: Yes (Hospitalization)
  Sender: FDA-Public Use
  Company Number: SK-JNJFOC-20120802854

PATIENT
  Sex: Male
  Weight: 100 kg

DRUGS (2)
  1. USTEKINUMAB [Suspect]
     Indication: PSORIASIS
     Route: 058
     Dates: start: 20100401
  2. CORTICOSTEROIDS [Concomitant]
     Route: 061

REACTIONS (3)
  - MULTIPLE-DRUG RESISTANCE [None]
  - SKIN INFECTION [None]
  - PSORIASIS [None]
